FAERS Safety Report 24927848 (Version 2)
Quarter: 2025Q3

REPORT INFORMATION
  Report Type: Spontaneous
  Country: US (occurrence: US)
  Receive Date: 20250205
  Receipt Date: 20250810
  Transmission Date: 20251021
  Serious: Yes (Other)
  Sender: ALEXION PHARMACEUTICALS
  Company Number: US-AstraZeneca-CH-00797123A

PATIENT
  Sex: Female

DRUGS (2)
  1. SAPHNELO [Suspect]
     Active Substance: ANIFROLUMAB-FNIA
     Indication: Systemic lupus erythematosus
  2. COLCHICINE [Concomitant]
     Active Substance: COLCHICINE
     Route: 065

REACTIONS (5)
  - Systemic lupus erythematosus [Unknown]
  - Chest discomfort [Unknown]
  - Inappropriate schedule of product administration [Unknown]
  - Product dose omission issue [Unknown]
  - Insurance issue [Unknown]
